FAERS Safety Report 23021124 (Version 2)
Quarter: 2023Q4

REPORT INFORMATION
  Report Type: Report from Study
  Country: JP (occurrence: JP)
  Receive Date: 20231003
  Receipt Date: 20231030
  Transmission Date: 20240109
  Serious: No
  Sender: FDA-Public Use
  Company Number: JP-PFIZER INC-2019281949

PATIENT
  Age: 69 Year
  Sex: Female
  Weight: 50.9 kg

DRUGS (1)
  1. LORBRENA [Suspect]
     Active Substance: LORLATINIB
     Indication: Non-small cell lung cancer
     Dosage: 100 MG, DAILY
     Dates: start: 20190612

REACTIONS (4)
  - Memory impairment [Not Recovered/Not Resolved]
  - Liver disorder [Recovered/Resolved]
  - Lipids increased [Recovering/Resolving]
  - Tumour marker increased [Unknown]

NARRATIVE: CASE EVENT DATE: 20190626
